FAERS Safety Report 9012954 (Version 2)
Quarter: 2013Q1

REPORT INFORMATION
  Report Type: Spontaneous
  Country: FR (occurrence: FR)
  Receive Date: 20130114
  Receipt Date: 20130228
  Transmission Date: 20140127
  Serious: Yes (Hospitalization)
  Sender: FDA-Public Use
  Company Number: FR-GLAXOSMITHKLINE-B0855910A

PATIENT
  Age: 90 None
  Sex: Female

DRUGS (10)
  1. ZINNAT [Suspect]
     Indication: LUNG INFECTION
     Dosage: 500MG PER DAY
     Route: 048
     Dates: start: 20121116, end: 20121119
  2. PREVISCAN [Suspect]
     Indication: PRODUCT USED FOR UNKNOWN INDICATION
     Dosage: 20MG PER DAY
     Route: 048
     Dates: end: 20121118
  3. KARDEGIC [Suspect]
     Indication: PRODUCT USED FOR UNKNOWN INDICATION
     Dosage: 75MG PER DAY
     Route: 048
     Dates: end: 20121119
  4. FLIXONASE [Concomitant]
     Dosage: 50MCG TWICE PER DAY
     Route: 045
  5. AMIODARONE [Concomitant]
     Dosage: 200MG THREE TIMES PER WEEK
     Route: 048
  6. EBIXA [Concomitant]
     Dosage: 10MG PER DAY
     Route: 048
     Dates: start: 2009
  7. EXFORGE [Concomitant]
     Dosage: 5MG PER DAY
     Route: 048
  8. FUROSEMIDE [Concomitant]
     Dosage: 40MG PER DAY
     Route: 048
  9. FORADIL [Concomitant]
     Dosage: 12MCG TWICE PER DAY
     Route: 055
  10. BUDESONIDE [Concomitant]
     Dosage: 400MCG TWICE PER DAY
     Route: 055

REACTIONS (11)
  - Normochromic normocytic anaemia [Not Recovered/Not Resolved]
  - International normalised ratio increased [Recovered/Resolved]
  - Haematoma [Recovered/Resolved with Sequelae]
  - Asthenia [Unknown]
  - Pallor [Unknown]
  - Dyspnoea exertional [Unknown]
  - Disorientation [Unknown]
  - Overdose [Recovered/Resolved]
  - Drug interaction [Unknown]
  - Renal failure acute [Unknown]
  - Oedema peripheral [Unknown]
